FAERS Safety Report 11371204 (Version 6)
Quarter: 2016Q3

REPORT INFORMATION
  Report Type: Spontaneous
  Country: US (occurrence: US)
  Receive Date: 20150812
  Receipt Date: 20160824
  Transmission Date: 20161109
  Serious: Yes (Hospitalization, Other)
  Sender: FDA-Public Use
  Company Number: US-PFIZER INC-2015265782

PATIENT
  Age: 67 Year
  Sex: Female
  Weight: 89 kg

DRUGS (2)
  1. LYRICA [Suspect]
     Active Substance: PREGABALIN
     Indication: NEUROPATHY PERIPHERAL
     Dosage: 200 MG, 2X/DAY
  2. LYRICA [Suspect]
     Active Substance: PREGABALIN
     Indication: PAIN
     Dosage: 100 MG, 2X/DAY
     Route: 048
     Dates: start: 20160818

REACTIONS (6)
  - Product use issue [Unknown]
  - Bacterial infection [Unknown]
  - Cardiac failure congestive [Recovered/Resolved with Sequelae]
  - Renal failure [Unknown]
  - Fatigue [Unknown]
  - Malaise [Unknown]
